FAERS Safety Report 25474051 (Version 1)
Quarter: 2025Q2

REPORT INFORMATION
  Report Type: Report from Study
  Country: US (occurrence: US)
  Receive Date: 20250624
  Receipt Date: 20250624
  Transmission Date: 20250717
  Serious: Yes (Hospitalization)
  Sender: ABBVIE
  Company Number: US-ABBVIE-6334454

PATIENT
  Sex: Female

DRUGS (1)
  1. LINZESS [Suspect]
     Active Substance: LINACLOTIDE
     Indication: Product used for unknown indication
     Route: 048
     Dates: start: 20230101

REACTIONS (5)
  - Gait inability [Not Recovered/Not Resolved]
  - Illness [Unknown]
  - Heart valve incompetence [Unknown]
  - Cardiac disorder [Unknown]
  - Spondylitis [Unknown]
